FAERS Safety Report 26137178 (Version 1)
Quarter: 2025Q4

REPORT INFORMATION
  Report Type: Spontaneous
  Country: EU (occurrence: EU)
  Receive Date: 20251209
  Receipt Date: 20251209
  Transmission Date: 20260118
  Serious: Yes (Other)
  Sender: ELI LILLY AND COMPANY
  Company Number: None

PATIENT
  Age: 44 Year
  Sex: Female

DRUGS (3)
  1. MOUNJARO [Interacting]
     Active Substance: TIRZEPATIDE
     Indication: Weight control
     Dosage: 5 MG/WEEK
     Route: 065
     Dates: start: 202506
  2. ACRIVASTINE\PSEUDOEPHEDRINE HYDROCHLORIDE [Interacting]
     Active Substance: ACRIVASTINE\PSEUDOEPHEDRINE HYDROCHLORIDE
     Indication: Sinusitis
     Dosage: 8 MG, UNKNOWN
     Route: 048
     Dates: start: 202510, end: 202511
  3. ACRIVASTINE\PSEUDOEPHEDRINE HYDROCHLORIDE [Interacting]
     Active Substance: ACRIVASTINE\PSEUDOEPHEDRINE HYDROCHLORIDE
     Indication: Nasal congestion

REACTIONS (6)
  - Blindness unilateral [Recovered/Resolved]
  - Headache [Recovered/Resolved]
  - Visual impairment [Recovered/Resolved]
  - Drug interaction [Recovered/Resolved]
  - Migraine with aura [Recovered/Resolved]
  - Nausea [Recovered/Resolved]

NARRATIVE: CASE EVENT DATE: 20251001
